FAERS Safety Report 10719952 (Version 1)
Quarter: 2015Q1

REPORT INFORMATION
  Report Type: Spontaneous
  Country: US (occurrence: US)
  Receive Date: 20150119
  Receipt Date: 20150119
  Transmission Date: 20150721
  Serious: No
  Sender: FDA-Public Use
  Company Number: US-UNITED THERAPEUTICS-UNT-2014-011178

PATIENT
  Age: 66 Year
  Sex: Female

DRUGS (1)
  1. TYVASO [Suspect]
     Active Substance: TREPROSTINIL
     Indication: PULMONARY ARTERIAL HYPERTENSION
     Dosage: 54 MICROGRAMS,QID
     Dates: start: 2010

REACTIONS (4)
  - Fatigue [Unknown]
  - Flushing [Unknown]
  - Joint swelling [Unknown]
  - Pain [Unknown]

NARRATIVE: CASE EVENT DATE: 20141117
